FAERS Safety Report 5030709-0 (Version None)
Quarter: 2006Q2

REPORT INFORMATION
  Report Type: 
  Country: None (occurrence: None)
  Receive Date: 20060615
  Receipt Date: 20060614
  Transmission Date: 20061013
  Serious: Yes (Death)
  Sender: FDA-Public Use
  Company Number: 222590

PATIENT
  Age: 57 Year
  Sex: Female
  Weight: 60 kg

DRUGS (1)
  1. HERCEPTIN [Suspect]
     Indication: BREAST CANCER
     Dosage: 240 MG, SINGLE, INTRAVENOUS
     Route: 042

REACTIONS (8)
  - CARDIAC ARREST [None]
  - CONVULSION [None]
  - DIZZINESS [None]
  - HYPOTENSION [None]
  - HYPOXIA [None]
  - INFUSION RELATED REACTION [None]
  - NAUSEA [None]
  - RESPIRATORY ARREST [None]
